FAERS Safety Report 20292577 (Version 1)
Quarter: 2022Q1

REPORT INFORMATION
  Report Type: Spontaneous
  Country: US (occurrence: US)
  Receive Date: 20220104
  Receipt Date: 20220104
  Transmission Date: 20220423
  Serious: Yes (Other)
  Sender: FDA-Public Use
  Company Number: US-Fresenius Kabi-FK202114811

PATIENT
  Age: 54 Year
  Sex: Male

DRUGS (10)
  1. HEPARIN SODIUM [Suspect]
     Active Substance: HEPARIN SODIUM
     Indication: Cardiogenic shock
     Route: 042
  2. AMIODARONE HYDROCHLORIDE [Suspect]
     Active Substance: AMIODARONE HYDROCHLORIDE
     Indication: Cardiogenic shock
     Dosage: 150 MG BOLUS FOLLOWED BY DRIP AT 1 MG/MIN FOR 6 H AND THEN 0.5 MG/MIN THERE-AFTER
     Route: 040
  3. AMIODARONE HYDROCHLORIDE [Suspect]
     Active Substance: AMIODARONE HYDROCHLORIDE
     Dosage: 150 MG BOLUS FOLLOWED BY DRIP AT 1 MG/MIN FOR 6 H AND THEN 0.5 MG/MIN THERE-AFTER
     Route: 041
  4. AMIODARONE HYDROCHLORIDE [Suspect]
     Active Substance: AMIODARONE HYDROCHLORIDE
     Route: 041
  5. APIXABAN [Suspect]
     Active Substance: APIXABAN
     Indication: Cardiogenic shock
     Route: 065
  6. ASPIRIN [Suspect]
     Active Substance: ASPIRIN
     Indication: Cardiogenic shock
     Route: 065
  7. CLOPIDOGREL [Suspect]
     Active Substance: CLOPIDOGREL BISULFATE
     Indication: Cardiogenic shock
     Route: 065
  8. MILRINONE [Concomitant]
     Active Substance: MILRINONE
     Indication: Cardiogenic shock
     Route: 042
  9. NOREPINEPHRINE [Concomitant]
     Active Substance: NOREPINEPHRINE
     Indication: Cardiogenic shock
     Route: 042
  10. AMIODARONE [Concomitant]
     Active Substance: AMIODARONE
     Indication: Cardiogenic shock
     Route: 048

REACTIONS (2)
  - Drug interaction [Recovered/Resolved]
  - Pericardial haemorrhage [Recovered/Resolved]
